FAERS Safety Report 19548421 (Version 1)
Quarter: 2021Q3

REPORT INFORMATION
  Report Type: Spontaneous
  Country: US (occurrence: US)
  Receive Date: 20210714
  Receipt Date: 20210714
  Transmission Date: 20211014
  Serious: Yes (Disabling)
  Sender: FDA-Public Use
  Company Number: None

PATIENT
  Age: 38 Year
  Sex: Female
  Weight: 112.5 kg

DRUGS (1)
  1. NEUTROGENA BEACH DEFENSE SUNSCREEN [Suspect]
     Active Substance: AVOBENZONE\HOMOSALATE\OCTISALATE\OCTOCRYLENE
     Indication: PROPHYLAXIS AGAINST SOLAR RADIATION
     Dates: start: 20210410, end: 20210410

REACTIONS (10)
  - Pain [None]
  - Impaired work ability [None]
  - Sensitive skin [None]
  - Suspected product quality issue [None]
  - Adverse reaction [None]
  - Skin exfoliation [None]
  - Chemical burn of skin [None]
  - Peripheral swelling [None]
  - Blister [None]
  - Recalled product [None]

NARRATIVE: CASE EVENT DATE: 20210410
